FAERS Safety Report 23710126 (Version 4)
Quarter: 2024Q2

REPORT INFORMATION
  Report Type: Report from Study
  Country: AU (occurrence: AU)
  Receive Date: 20240405
  Receipt Date: 20240519
  Transmission Date: 20240717
  Serious: No
  Sender: FDA-Public Use
  Company Number: AU-JNJFOC-20240339913

PATIENT
  Age: 68 Year
  Sex: Male
  Weight: 109 kg

DRUGS (5)
  1. STELARA [Suspect]
     Active Substance: USTEKINUMAB
     Indication: Colitis ulcerative
     Route: 058
  2. STELARA [Suspect]
     Active Substance: USTEKINUMAB
  3. METHOTREXATE [Concomitant]
     Active Substance: METHOTREXATE
     Indication: Colitis ulcerative
     Route: 048
     Dates: start: 2019
  4. FOLIC ACID [Concomitant]
     Active Substance: FOLIC ACID
     Indication: Colitis ulcerative
     Dates: start: 2019
  5. MESALAMINE [Concomitant]
     Active Substance: MESALAMINE
     Indication: Colitis ulcerative
     Route: 048
     Dates: start: 2008

REACTIONS (3)
  - Device issue [Unknown]
  - Product dose omission issue [Unknown]
  - Off label use [Unknown]
